FAERS Safety Report 21322180 (Version 1)
Quarter: 2022Q3

REPORT INFORMATION
  Report Type: Report from Study
  Country: US (occurrence: US)
  Receive Date: 20220912
  Receipt Date: 20220912
  Transmission Date: 20221027
  Serious: Yes (Hospitalization, Other)
  Sender: FDA-Public Use
  Company Number: US-GILEAD-2022-0596751

PATIENT
  Age: 72 Year
  Sex: Male

DRUGS (40)
  1. AZTREONAM LYSINE [Suspect]
     Active Substance: AZTREONAM LYSINE
     Indication: Product used for unknown indication
     Dosage: 75 MG, TID CONTINUOUSLY
     Route: 055
  2. TAMSULOSIN [Concomitant]
     Active Substance: TAMSULOSIN
  3. ASPIRIN [Concomitant]
     Active Substance: ASPIRIN
  4. ALBUTEROL\IPRATROPIUM [Concomitant]
     Active Substance: ALBUTEROL\IPRATROPIUM
  5. HERBALS\VITIS VINIFERA SEED [Concomitant]
     Active Substance: HERBALS\VITIS VINIFERA SEED
  6. PREVAGEN [APOAEQUORIN;COLECALCIFEROL] [Concomitant]
  7. MONTELUKAST SODIUM [Concomitant]
     Active Substance: MONTELUKAST SODIUM
  8. VIAGRA [Concomitant]
     Active Substance: SILDENAFIL CITRATE
  9. BUDESONIDE [Concomitant]
     Active Substance: BUDESONIDE
  10. FLONASE ALLERGY RELIEF [Concomitant]
     Active Substance: FLUTICASONE PROPIONATE
  11. ADVAIR HFA [Concomitant]
     Active Substance: FLUTICASONE PROPIONATE\SALMETEROL XINAFOATE
  12. TEMAZEPAM [Concomitant]
     Active Substance: TEMAZEPAM
  13. ALBUTEROL SULFATE [Concomitant]
     Active Substance: ALBUTEROL SULFATE
  14. TYLENOL [Concomitant]
     Active Substance: ACETAMINOPHEN
  15. SPIRIVA [Concomitant]
     Active Substance: TIOTROPIUM BROMIDE MONOHYDRATE
  16. IPRATROPIUM BROMIDE [Concomitant]
     Active Substance: IPRATROPIUM BROMIDE
  17. TOBRAMYCIN [Concomitant]
     Active Substance: TOBRAMYCIN
  18. VITAMIN B12 [Concomitant]
     Active Substance: CYANOCOBALAMIN
  19. VITAMIN B COMPLEX [Concomitant]
     Active Substance: CYANOCOBALAMIN\DEXPANTHENOL\NIACINAMIDE\PYRIDOXINE HYDROCHLORIDE\RIBOFLAVIN 5^-PHOSPHATE SODIUM\THIA
  20. GABAPENTIN [Concomitant]
     Active Substance: GABAPENTIN
  21. HERBALS\SAW PALMETTO [Concomitant]
     Active Substance: HERBALS\SAW PALMETTO
  22. VITAMIN C [Concomitant]
     Active Substance: ASCORBIC ACID
  23. MAGNESIUM [Concomitant]
     Active Substance: MAGNESIUM
  24. ZINC [Concomitant]
     Active Substance: ZINC
  25. GARLIC [Concomitant]
     Active Substance: GARLIC
  26. SELENIUM [Concomitant]
     Active Substance: SELENIUM
  27. SIMVASTATIN [Concomitant]
     Active Substance: SIMVASTATIN
  28. FINASTERIDE [Concomitant]
     Active Substance: FINASTERIDE
  29. VITAMIN D NOS [Concomitant]
     Active Substance: VITAMIN D NOS
  30. BIOTIN [Concomitant]
     Active Substance: BIOTIN
  31. HERBALS\TURMERIC [Concomitant]
     Active Substance: HERBALS\TURMERIC
  32. CHONDROITIN SULFATE (BOVINE) [Concomitant]
     Active Substance: CHONDROITIN SULFATE (BOVINE)
  33. GREEN TEA EXTRACT [CAMELLIA SINENSIS] [Concomitant]
  34. MUCINEX [Concomitant]
     Active Substance: GUAIFENESIN
  35. BACLOFEN [Concomitant]
     Active Substance: BACLOFEN
  36. GINGER ROOT [ZINGIBER OFFICINALE ROOT] [Concomitant]
  37. SODIUM CHLORIDE [Concomitant]
     Active Substance: SODIUM CHLORIDE
  38. GLUCOSAMINE [Concomitant]
     Active Substance: GLUCOSAMINE
  39. BASIL\HERBALS [Concomitant]
     Active Substance: BASIL\HERBALS
  40. APOAEQUORIN [Concomitant]

REACTIONS (3)
  - Seizure [Unknown]
  - Loss of consciousness [Recovered/Resolved]
  - Off label use [Not Recovered/Not Resolved]

NARRATIVE: CASE EVENT DATE: 20220822
